FAERS Safety Report 14307931 (Version 1)
Quarter: 2017Q4

REPORT INFORMATION
  Report Type: Spontaneous
  Country: US (occurrence: US)
  Receive Date: 20171220
  Receipt Date: 20171220
  Transmission Date: 20180321
  Serious: No
  Sender: FDA-Public Use
  Company Number: US-009507513-1712USA002336

PATIENT
  Age: 71 Year
  Sex: Male

DRUGS (1)
  1. BELSOMRA [Suspect]
     Active Substance: SUVOREXANT
     Indication: SLEEP DISORDER
     Dosage: 5MG FOR FIRST 3 DAYS, THEN 10MG DOSE, ONCE NIGHTLY
     Route: 048
     Dates: start: 20171202

REACTIONS (4)
  - Amnesia [Unknown]
  - Drug ineffective [Unknown]
  - Somnolence [Unknown]
  - Wrong technique in product usage process [Unknown]

NARRATIVE: CASE EVENT DATE: 201712
